FAERS Safety Report 12709221 (Version 1)
Quarter: 2016Q3

REPORT INFORMATION
  Report Type: Spontaneous
  Country: US (occurrence: None)
  Receive Date: 20160901
  Receipt Date: 20160901
  Transmission Date: 20161109
  Serious: Yes (Other)
  Sender: FDA-Public Use
  Company Number: None

PATIENT
  Age: 53 Year
  Sex: Female
  Weight: 79.38 kg

DRUGS (4)
  1. BLACK COHOSH [Concomitant]
     Active Substance: BLACK COHOSH
  2. HUMIRA [Suspect]
     Active Substance: ADALIMUMAB
     Indication: COLITIS ULCERATIVE
     Dates: start: 20150901, end: 20160505
  3. VITAMIN D [Concomitant]
     Active Substance: CHOLECALCIFEROL
  4. PREDNISONE. [Concomitant]
     Active Substance: PREDNISONE

REACTIONS (5)
  - Skin irritation [None]
  - Hypertension [None]
  - Pain in jaw [None]
  - Chest pain [None]
  - Urticaria [None]

NARRATIVE: CASE EVENT DATE: 20160504
